FAERS Safety Report 6324489-6 (Version None)
Quarter: 2009Q3

REPORT INFORMATION
  Report Type: 
  Country: None (occurrence: None)
  Receive Date: 20090824
  Receipt Date: 20090511
  Transmission Date: 20100115
  Serious: No
  Sender: FDA-Public Use
  Company Number: US-ABBOTT-09P-163-0572905-00

PATIENT
  Sex: Female
  Weight: 74.91 kg

DRUGS (9)
  1. NIASPAN [Suspect]
     Indication: BLOOD CHOLESTEROL
     Dates: start: 20090503
  2. ASPIRIN [Concomitant]
     Indication: DRUG USE FOR UNKNOWN INDICATION
  3. TOPROL-XL [Concomitant]
     Indication: BLOOD PRESSURE
  4. CARDIZEM [Concomitant]
     Indication: BLOOD PRESSURE
  5. AVALIDE [Concomitant]
     Indication: BLOOD PRESSURE
     Dosage: 300/25 MG, 1 IN 1 DAY
  6. SINGULAIR [Concomitant]
     Indication: ASTHMA
  7. PREVACID [Concomitant]
     Indication: GASTRIC DISORDER
  8. XANAX [Concomitant]
     Indication: DRUG USE FOR UNKNOWN INDICATION
     Route: 048
  9. ZOCOR [Concomitant]
     Indication: BLOOD CHOLESTEROL

REACTIONS (1)
  - HEADACHE [None]
